FAERS Safety Report 7136855-X (Version None)
Quarter: 2010Q4

REPORT INFORMATION
  Report Type: 
  Country: None (occurrence: None)
  Receive Date: 20101119
  Receipt Date: 20101115
  Transmission Date: 20110411
  Serious: Yes (Other)
  Sender: FDA-Public Use
  Company Number: A0892486A

PATIENT
  Age: 83 Year
  Sex: Male

DRUGS (1)
  1. UREA HYDROGEN PEROXIDE DROP(S) (UREA HYDROGEN PEROXIDE) [Suspect]
     Indication: PRODUCT USED FOR UNKNOWN INDICATION
     Dates: start: 20101115

REACTIONS (1)
  - DEAFNESS [None]
